FAERS Safety Report 7135542-1 (Version None)
Quarter: 2010Q4

REPORT INFORMATION
  Report Type: 
  Country: None (occurrence: None)
  Receive Date: 20101203
  Receipt Date: 20101122
  Transmission Date: 20110411
  Serious: Yes (Hospitalization, Other)
  Sender: FDA-Public Use
  Company Number: CA-ELI_LILLY_AND_COMPANY-CA201011005762

PATIENT
  Age: 50 Year
  Sex: Female

DRUGS (10)
  1. CYMBALTA [Suspect]
     Indication: FIBROMYALGIA
     Dosage: 30 MG, DAILY (1/D)
     Route: 048
     Dates: start: 20100901
  2. CYMBALTA [Suspect]
     Dosage: 60 MG, DAILY (1/D)
     Route: 048
  3. CYMBALTA [Suspect]
     Dosage: 60 MG, QOD
  4. CYMBALTA [Suspect]
     Dosage: 60 MG, UNKNOWN
  5. NEXIUM [Concomitant]
     Dosage: 40 MG, DAILY (1/D)
  6. CELEXA [Concomitant]
     Dosage: 60 MG, DAILY (1/D)
  7. CLONAZEPAM [Concomitant]
     Dosage: 1.5 MG, EACH EVENING
  8. IBUPROFEN [Concomitant]
     Dosage: UNK, AS NEEDED
  9. PERCOCET [Concomitant]
     Indication: PAIN
     Dosage: UNK, UNKNOWN
  10. TORADOL [Concomitant]

REACTIONS (14)
  - ABDOMINAL PAIN UPPER [None]
  - CONTUSION [None]
  - DECREASED APPETITE [None]
  - DEPRESSED MOOD [None]
  - DIARRHOEA [None]
  - FEELING JITTERY [None]
  - HAEMORRHAGE URINARY TRACT [None]
  - INSOMNIA [None]
  - NAUSEA [None]
  - PRURITUS [None]
  - SELF-INJURIOUS IDEATION [None]
  - URINARY HESITATION [None]
  - VIOLENCE-RELATED SYMPTOM [None]
  - WHITE BLOOD CELL COUNT INCREASED [None]
